FAERS Safety Report 5451019-3 (Version None)
Quarter: 2007Q3

REPORT INFORMATION
  Report Type: 
  Country: None (occurrence: None)
  Receive Date: 20070911
  Receipt Date: 20070827
  Transmission Date: 20080115
  Serious: Yes (Life-Threatening, Other)
  Sender: FDA-Public Use
  Company Number: 100#03#2007-03301

PATIENT
  Age: 19 Year
  Sex: Female

DRUGS (9)
  1. METHOTREXATE [Suspect]
     Indication: JUVENILE ARTHRITIS
     Dosage: 5 MG (2.5 MG, WEEKLY),  ORAL
     Route: 048
  2. SULFASALAZIN (SULFASALAZINE) (SULFASALAZIN) [Concomitant]
  3. NOVALGETOL (METAMIZOLE SODIUM) (METAMIZOLE) [Concomitant]
  4. MOVALIS (MELOXICAM) (MELOXICAM) [Concomitant]
  5. DIFUKAN (FLUCONAZOLE) (FLUCONAZOLE) [Concomitant]
  6. VANCOMICIN (VANCOMYCIN) (VANCOMYCIN) [Concomitant]
  7. MERONEM GLUCOCORTICOID (MEROPENEM) (MEROPENEM) [Concomitant]
  8. TAZOCIN (PIP/TAZO) (TAZOCIN) [Concomitant]
  9. CIPROCINAL (CIPROFLOXACIN) (CIPROFLOXACIN) [Concomitant]

REACTIONS (9)
  - ARTHRALGIA [None]
  - BLOOD TRIGLYCERIDES INCREASED [None]
  - DISSEMINATED INTRAVASCULAR COAGULATION [None]
  - HEPATIC ENZYME INCREASED [None]
  - LEUKOPENIA [None]
  - MYALGIA [None]
  - PYREXIA [None]
  - SERUM FERRITIN INCREASED [None]
  - THROMBOCYTOPENIA [None]
